FAERS Safety Report 9130403 (Version 7)
Quarter: 2014Q3

REPORT INFORMATION
  Report Type: Spontaneous
  Country: US (occurrence: US)
  Receive Date: 20130228
  Receipt Date: 20140825
  Transmission Date: 20150326
  Serious: No
  Sender: FDA-Public Use
  Company Number: US-009507513-1302USA012209

PATIENT
  Sex: Male
  Weight: 68.93 kg

DRUGS (2)
  1. PROSCAR [Suspect]
     Active Substance: FINASTERIDE
     Indication: ANDROGENETIC ALOPECIA
     Dosage: 5 MG, UNK
     Route: 048
     Dates: start: 20031106, end: 200601
  2. PROPECIA [Suspect]
     Active Substance: FINASTERIDE
     Indication: ANDROGENETIC ALOPECIA
     Dosage: 1 MG, UNK
     Route: 048

REACTIONS (45)
  - Groin pain [Unknown]
  - Mood swings [Unknown]
  - Mental impairment [Unknown]
  - Nausea [Unknown]
  - Raynaud^s phenomenon [Unknown]
  - Palpitations [Unknown]
  - Liver function test abnormal [Unknown]
  - Varicocele [Unknown]
  - Skin exfoliation [Unknown]
  - Aggression [Unknown]
  - Depression [Unknown]
  - Cognitive disorder [Not Recovered/Not Resolved]
  - Drug administration error [Unknown]
  - Insomnia [Unknown]
  - Headache [Unknown]
  - Memory impairment [Unknown]
  - Chest pain [Unknown]
  - Weight fluctuation [Unknown]
  - Prostatitis [Unknown]
  - Eczema [Unknown]
  - Seasonal affective disorder [Unknown]
  - Dyspnoea [Unknown]
  - Semen liquefaction [Unknown]
  - Blood parathyroid hormone abnormal [Unknown]
  - Stress at work [Unknown]
  - Palpitations [Unknown]
  - Ligament sprain [Unknown]
  - Vision blurred [Unknown]
  - Asthma [Unknown]
  - Erythema [Unknown]
  - Organic erectile dysfunction [Unknown]
  - Penis disorder [Unknown]
  - Blood 1,25-dihydroxycholecalciferol decreased [Unknown]
  - Fatigue [Unknown]
  - Dizziness [Unknown]
  - Chest discomfort [Unknown]
  - Testicular atrophy [Unknown]
  - Hypercalcaemia [Unknown]
  - Testis discomfort [Unknown]
  - Muscle atrophy [Unknown]
  - Anxiety [Unknown]
  - Rash [Unknown]
  - Infertility male [Unknown]
  - Sexual dysfunction [Not Recovered/Not Resolved]
  - Testicular pain [Unknown]

NARRATIVE: CASE EVENT DATE: 20031106
